FAERS Safety Report 7762655-3 (Version None)
Quarter: 2011Q3

REPORT INFORMATION
  Report Type: 
  Country: None (occurrence: None)
  Receive Date: 20110920
  Receipt Date: 20110909
  Transmission Date: 20111222
  Serious: Yes (Hospitalization)
  Sender: FDA-Public Use
  Company Number: CA-JNJFOC-20110904849

PATIENT
  Sex: Female
  Weight: 76.7 kg

DRUGS (3)
  1. VENLAFAXINE HYDROCHLORIDE [Concomitant]
     Route: 065
  2. REMICADE [Suspect]
     Indication: CROHN'S DISEASE
     Route: 042
     Dates: start: 20110301
  3. GRAVOL TAB [Concomitant]
     Route: 048

REACTIONS (1)
  - INTESTINAL RESECTION [None]
